FAERS Safety Report 9849322 (Version 2)
Quarter: 2014Q2

REPORT INFORMATION
  Report Type: Report from Study
  Country: BR (occurrence: BR)
  Receive Date: 20140128
  Receipt Date: 20140428
  Transmission Date: 20141212
  Serious: No
  Sender: FDA-Public Use
  Company Number: BR-ABBVIE-14P-020-1193226-00

PATIENT
  Sex: Female
  Weight: 78 kg

DRUGS (3)
  1. HUMIRA [Suspect]
     Indication: RHEUMATOID ARTHRITIS
     Route: 058
     Dates: start: 20131114
  2. PREDNISONE [Concomitant]
     Indication: ARTHRITIS
     Route: 048
  3. CHLOROQUINE [Concomitant]
     Indication: RHEUMATOID ARTHRITIS

REACTIONS (1)
  - Hepatic function abnormal [Not Recovered/Not Resolved]
